APPROVED DRUG PRODUCT: PSEUDOEPHEDRINE HYDROCHLORIDE AND CHLORPHENIRAMINE MALEATE
Active Ingredient: CHLORPHENIRAMINE MALEATE; PSEUDOEPHEDRINE HYDROCHLORIDE
Strength: 8MG;120MG
Dosage Form/Route: CAPSULE, EXTENDED RELEASE;ORAL
Application: N018844 | Product #001
Applicant: DM GRAHAM LABORATORIES INC
Approved: Mar 20, 1985 | RLD: No | RS: No | Type: DISCN